FAERS Safety Report 5786425-0 (Version None)
Quarter: 2008Q2

REPORT INFORMATION
  Report Type: 
  Country: None (occurrence: None)
  Receive Date: 20080619
  Receipt Date: 20080522
  Transmission Date: 20081010
  Serious: Yes (Death)
  Sender: FDA-Public Use
  Company Number: 2008S1009215

PATIENT
  Age: 65 Year
  Sex: Male

DRUGS (1)
  1. FLUOXETINE [Suspect]
     Indication: DEPRESSION
     Dosage: 20 MG; ORAL
     Route: 048
     Dates: start: 20080312, end: 20080323

REACTIONS (1)
  - COMPLETED SUICIDE [None]
